FAERS Safety Report 9848565 (Version 1)
Quarter: 2013Q4

REPORT INFORMATION
  Report Type: Spontaneous
  Country: US (occurrence: None)
  Receive Date: 20131224
  Receipt Date: 20131224
  Transmission Date: 20140711
  Serious: Yes (Other)
  Sender: FDA-Public Use
  Company Number: PHEH2013US006776

PATIENT
  Age: 46 Year
  Sex: Male

DRUGS (1)
  1. CLOZARIL (CLOZAPINE) UNKNOWN [Suspect]
     Indication: SCHIZOPHRENIA
     Route: 048
     Dates: start: 1990, end: 20130321

REACTIONS (4)
  - Neutropenia [None]
  - Leukopenia [None]
  - Thrombocytopenia [None]
  - Influenza [None]
